FAERS Safety Report 6841971-3 (Version None)
Quarter: 2010Q3

REPORT INFORMATION
  Report Type: 
  Country: None (occurrence: None)
  Receive Date: 20100709
  Receipt Date: 20100623
  Transmission Date: 20110219
  Serious: Yes (Other)
  Sender: FDA-Public Use
  Company Number: ACO_01298_2010

PATIENT
  Age: 47 Year

DRUGS (1)
  1. TIZANIDINE HCL [Suspect]
     Indication: DISABILITY
     Dosage: (DF)

REACTIONS (1)
  - ILEUS PARALYTIC [None]
